FAERS Safety Report 11318635 (Version 2)
Quarter: 2015Q3

REPORT INFORMATION
  Report Type: Spontaneous
  Country: DE (occurrence: DE)
  Receive Date: 20150729
  Receipt Date: 20150917
  Transmission Date: 20151125
  Serious: Yes (Death, Other)
  Sender: FDA-Public Use
  Company Number: DE-AMGEN-DEUSP2015075513

PATIENT
  Age: 58 Year
  Sex: Female
  Weight: 57 kg

DRUGS (25)
  1. CALCIUM + VITAMIN D                /01483701/ [Concomitant]
     Active Substance: CALCIUM\VITAMIN D
     Dosage: UNK
  2. NACL [Concomitant]
     Active Substance: SODIUM CHLORIDE
  3. MCP [Concomitant]
     Active Substance: METOCLOPRAMIDE HYDROCHLORIDE
     Dosage: UNK
     Dates: start: 20120720
  4. NORSPAN [Concomitant]
     Active Substance: BUPRENORPHINE
  5. OLIMEL [Concomitant]
     Active Substance: AMINO ACIDS\DEXTROSE\SOYBEAN OIL
  6. RESOURCE PROTEIN                   /07459701/ [Concomitant]
  7. CERNEVIT [Concomitant]
     Active Substance: VITAMINS
  8. IMODIUM [Concomitant]
     Active Substance: LOPERAMIDE HYDROCHLORIDE
     Indication: PROPHYLAXIS
     Dosage: UNK
     Dates: start: 20120713
  9. XGEVA [Suspect]
     Active Substance: DENOSUMAB
     Indication: METASTASES TO BONE
     Dosage: 120 MG, UNK
     Route: 058
     Dates: start: 20110204, end: 20121129
  10. GRANISETRON [Concomitant]
     Active Substance: GRANISETRON
  11. METOCLOPRAMID                      /00041901/ [Concomitant]
  12. SUPRADYN                           /01742801/ [Concomitant]
  13. RAMIPRIL. [Concomitant]
     Active Substance: RAMIPRIL
     Dosage: 1 MG, UNK
  14. SANDOCAL                           /00751528/ [Concomitant]
     Indication: PROPHYLAXIS
     Dosage: UNK
     Dates: start: 20120731
  15. CLEXANE [Concomitant]
     Active Substance: ENOXAPARIN SODIUM
  16. CAPECITABINE. [Concomitant]
     Active Substance: CAPECITABINE
     Dosage: 2000 MG/M2, UNK
     Dates: start: 20120716, end: 20120909
  17. NAVELBINE [Concomitant]
     Active Substance: VINORELBINE TARTRATE
     Dosage: 50 MG/M2, UNK
     Dates: start: 20140307
  18. DULCOLAX (BISACODYL) [Concomitant]
     Active Substance: BISACODYL
  19. KALINOR                            /00031402/ [Concomitant]
     Active Substance: POTASSIUM CITRATE
  20. CEFUROXIM                          /00454602/ [Concomitant]
     Active Substance: CEFUROXIME
     Indication: PROPHYLAXIS
     Dosage: 500 MG, UNK
     Dates: start: 20120918, end: 20120922
  21. NOVALGIN [Concomitant]
     Active Substance: METAMIZOLE SODIUM
  22. IBUPROFEN. [Concomitant]
     Active Substance: IBUPROFEN
  23. STEROFUNDIN [Concomitant]
  24. CLINDAMYCIN [Concomitant]
     Active Substance: CLINDAMYCIN\CLINDAMYCIN PHOSPHATE
  25. TARGIN [Concomitant]
     Active Substance: NALOXONE HYDROCHLORIDE\OXYCODONE HYDROCHLORIDE

REACTIONS (5)
  - Alanine aminotransferase increased [Not Recovered/Not Resolved]
  - Metastases to central nervous system [Not Recovered/Not Resolved]
  - Aspartate aminotransferase increased [Not Recovered/Not Resolved]
  - General physical health deterioration [Fatal]
  - Decreased appetite [Not Recovered/Not Resolved]

NARRATIVE: CASE EVENT DATE: 20120625
